FAERS Safety Report 6028931-X (Version None)
Quarter: 2009Q1

REPORT INFORMATION
  Report Type: 
  Country: None (occurrence: None)
  Receive Date: 20090106
  Receipt Date: 20081230
  Transmission Date: 20090719
  Serious: Yes (Hospitalization)
  Sender: FDA-Public Use
  Company Number: US-BAYER-200841820NA

PATIENT
  Age: 50 Year
  Sex: Male

DRUGS (9)
  1. DACARBAZINE [Suspect]
     Indication: MALIGNANT MELANOMA
     Route: 042
     Dates: start: 20081030, end: 20081120
  2. DASATINIB [Suspect]
     Indication: MALIGNANT MELANOMA
     Dosage: TOTAL DAILY DOSE: 100 MG
     Route: 048
     Dates: start: 20081031, end: 20081209
  3. MULTI-VITAMIN [Concomitant]
     Dates: start: 20080101
  4. HYDROCODONE [Concomitant]
     Dates: start: 20081101
  5. ZOFRAN [Concomitant]
  6. COMPAZINE [Concomitant]
  7. FENTANYL-100 [Concomitant]
     Dates: start: 20081201
  8. DULCOLAX [Concomitant]
  9. SENOKOT [Concomitant]

REACTIONS (3)
  - ASCITES [None]
  - OEDEMA [None]
  - PLEURAL EFFUSION [None]
